FAERS Safety Report 9193675 (Version 1)
Quarter: 2013Q1

REPORT INFORMATION
  Report Type: Spontaneous
  Country: JP (occurrence: JP)
  Receive Date: 20130327
  Receipt Date: 20130327
  Transmission Date: 20140127
  Serious: Yes (Hospitalization)
  Sender: FDA-Public Use
  Company Number: JP-GLAXOSMITHKLINE-B0878005A

PATIENT
  Age: 6 Decade
  Sex: Male

DRUGS (3)
  1. LAMICTAL [Suspect]
     Indication: BIPOLAR DISORDER
     Dosage: 25MG TWICE PER DAY
     Route: 048
     Dates: start: 20130303, end: 20130320
  2. LIMAS [Suspect]
     Indication: BIPOLAR DISORDER
     Route: 048
     Dates: end: 20130320
  3. ABILIFY [Concomitant]
     Indication: BIPOLAR DISORDER
     Route: 048
     Dates: end: 20130320

REACTIONS (1)
  - Pneumonia aspiration [Not Recovered/Not Resolved]
